FAERS Safety Report 12874173 (Version 1)
Quarter: 2016Q4

REPORT INFORMATION
  Report Type: Report from Study
  Country: None (occurrence: US)
  Receive Date: 20161021
  Receipt Date: 20161021
  Transmission Date: 20170207
  Serious: Yes (Other)
  Sender: FDA-Public Use
  Company Number: US-ABBVIE-16K-163-1724095-00

PATIENT
  Age: 62 Year
  Sex: Female

DRUGS (1)
  1. HUMIRA [Suspect]
     Active Substance: ADALIMUMAB
     Indication: RHEUMATOID ARTHRITIS
     Route: 058
     Dates: start: 20160713

REACTIONS (16)
  - Activities of daily living impaired [Unknown]
  - Mobility decreased [Unknown]
  - Pain in extremity [Unknown]
  - Arthralgia [Unknown]
  - Depression [Unknown]
  - Musculoskeletal stiffness [Recovered/Resolved]
  - Discomfort [Unknown]
  - Joint stiffness [Unknown]
  - Peripheral swelling [Unknown]
  - Chronic kidney disease [Unknown]
  - Gait disturbance [Unknown]
  - Peripheral swelling [Unknown]
  - Neck pain [Unknown]
  - Pain [Unknown]
  - Urine abnormality [Unknown]
  - Anxiety [Unknown]

NARRATIVE: CASE EVENT DATE: 2016
